FAERS Safety Report 23568590 (Version 1)
Quarter: 2024Q1

REPORT INFORMATION
  Report Type: Spontaneous
  Country: GB (occurrence: GB)
  Receive Date: 20240227
  Receipt Date: 20240227
  Transmission Date: 20240410
  Serious: Yes (Hospitalization, Other)
  Sender: FDA-Public Use
  Company Number: None

PATIENT
  Sex: Female

DRUGS (1)
  1. WEGOVY [Suspect]
     Active Substance: SEMAGLUTIDE
     Indication: Product used for unknown indication
     Dosage: UNK

REACTIONS (5)
  - Gastrointestinal haemorrhage [Recovered/Resolved with Sequelae]
  - Appetite disorder [Not Recovered/Not Resolved]
  - Diarrhoea haemorrhagic [Recovered/Resolved with Sequelae]
  - Vomiting [Recovered/Resolved]
  - Renal impairment [Recovered/Resolved]
